FAERS Safety Report 6656915-7 (Version None)
Quarter: 2010Q1

REPORT INFORMATION
  Report Type: 
  Country: None (occurrence: None)
  Receive Date: 20100329
  Receipt Date: 20100329
  Transmission Date: 20100710
  Serious: Yes (Life-Threatening, Hospitalization)
  Sender: FDA-Public Use
  Company Number: None

PATIENT
  Age: 62 Year
  Sex: Female

DRUGS (4)
  1. CITALOPRAM HYDROBROMIDE [Suspect]
     Indication: DEPRESSION
     Dosage: 60 MG AT BEDTIME PO
     Route: 048
     Dates: start: 20090113, end: 20100324
  2. CITALOPRAM HYDROBROMIDE [Suspect]
     Indication: POST-TRAUMATIC STRESS DISORDER
     Dosage: 60 MG AT BEDTIME PO
     Route: 048
     Dates: start: 20090113, end: 20100324
  3. TRAZODONE HCL [Suspect]
     Indication: DEPRESSION
     Dosage: 300 MG AT BEDTIME PO
     Route: 048
     Dates: start: 20090113, end: 20100324
  4. TRAZODONE HCL [Suspect]
     Indication: POST-TRAUMATIC STRESS DISORDER
     Dosage: 300 MG AT BEDTIME PO
     Route: 048
     Dates: start: 20090113, end: 20100324

REACTIONS (2)
  - ELECTROLYTE IMBALANCE [None]
  - VENTRICULAR TACHYCARDIA [None]
